FAERS Safety Report 11177147 (Version 1)
Quarter: 2015Q2

REPORT INFORMATION
  Report Type: Spontaneous
  Country: US (occurrence: US)
  Receive Date: 20150610
  Receipt Date: 20150610
  Transmission Date: 20150821
  Serious: Yes (Hospitalization, Other)
  Sender: FDA-Public Use
  Company Number: US-DRREDDYS-USA/USA/15/0048461

PATIENT
  Age: 69 Year
  Sex: Male

DRUGS (6)
  1. LEVOFLOXACIN TABLETS [Suspect]
     Active Substance: LEVOFLOXACIN
     Indication: EPIDIDYMITIS
  2. VANCOMYCIN [Suspect]
     Active Substance: VANCOMYCIN
     Indication: CELLULITIS
  3. PIPERACILLIN-TAZOBACTUM [Suspect]
     Active Substance: PIPERACILLIN SODIUM\TAZOBACTAM SODIUM
     Indication: ARTHRITIS BACTERIAL
  4. PIPERACILLIN-TAZOBACTUM [Suspect]
     Active Substance: PIPERACILLIN SODIUM\TAZOBACTAM SODIUM
     Indication: CELLULITIS
  5. LEVOFLOXACIN TABLETS [Suspect]
     Active Substance: LEVOFLOXACIN
     Indication: ORCHITIS
  6. VANCOMYCIN [Suspect]
     Active Substance: VANCOMYCIN
     Indication: ARTHRITIS BACTERIAL

REACTIONS (15)
  - Erythema [Unknown]
  - Joint range of motion decreased [Unknown]
  - Leukocytosis [Recovered/Resolved]
  - Arthritis bacterial [Unknown]
  - Ligament rupture [Unknown]
  - Pyrexia [Recovered/Resolved]
  - Tendon rupture [Unknown]
  - Night sweats [Unknown]
  - Cellulitis [Unknown]
  - Oedema peripheral [Unknown]
  - Pain in extremity [Unknown]
  - Neutrophil count increased [Unknown]
  - Muscular weakness [Unknown]
  - Feeling hot [Recovered/Resolved]
  - Chills [Unknown]
